FAERS Safety Report 8415166-6 (Version None)
Quarter: 2012Q2

REPORT INFORMATION
  Report Type: 
  Country: None (occurrence: None)
  Receive Date: 20120606
  Receipt Date: 20120530
  Transmission Date: 20120825
  Serious: No
  Sender: FDA-Public Use
  Company Number: US-PFIZER INC-2012131154

PATIENT
  Sex: Female

DRUGS (4)
  1. AMBRISENTAN [Suspect]
     Indication: SARCOIDOSIS
  2. AMBRISENTAN [Suspect]
     Indication: NEPHROPATHY
  3. AMBRISENTAN [Suspect]
     Indication: PULMONARY HYPERTENSION
     Dosage: 5 MG, UNK
     Route: 048
     Dates: start: 20120206
  4. REVATIO [Suspect]
     Dosage: UNK

REACTIONS (2)
  - HYPOTENSION [None]
  - DIZZINESS [None]
